FAERS Safety Report 7673259-5 (Version None)
Quarter: 2011Q3

REPORT INFORMATION
  Report Type: 
  Country: None (occurrence: None)
  Receive Date: 20110810
  Receipt Date: 20110729
  Transmission Date: 20111222
  Serious: Yes (Hospitalization)
  Sender: FDA-Public Use
  Company Number: US-CELGENEUS-163-21880-11061471

PATIENT
  Sex: Female

DRUGS (14)
  1. FISH OIL [Concomitant]
     Dosage: 2
     Route: 048
     Dates: start: 20091016
  2. ASPIRIN [Concomitant]
     Dosage: 1
     Route: 048
     Dates: start: 20090804
  3. CALCIUM CARBONATE [Concomitant]
     Dosage: 2
     Route: 048
     Dates: start: 20100810
  4. KLOR-CON [Concomitant]
     Dosage: 20 MILLIEQUIVALENTS
     Route: 048
     Dates: start: 20101130
  5. CALCIUM CARBONATE [Concomitant]
     Dosage: 5
     Route: 048
     Dates: start: 20100212
  6. VITAMIN D [Concomitant]
     Dosage: 1000 UNIT
     Route: 048
     Dates: start: 20090630
  7. BUPROPION HCL [Concomitant]
     Dosage: 150 MILLIGRAM
     Route: 048
     Dates: start: 20110106
  8. TROPICAMIDE [Concomitant]
     Dosage: EACH EYE
     Route: 047
     Dates: start: 20100729
  9. REVLIMID [Suspect]
     Indication: MULTIPLE MYELOMA
     Dosage: 25 MILLIGRAM
     Route: 048
     Dates: start: 20090717
  10. DEXAMETHASONE [Concomitant]
     Dosage: 10
     Route: 048
     Dates: start: 20100902
  11. RISPERIDONE [Concomitant]
     Dosage: 1/2
     Route: 048
     Dates: start: 20110312
  12. PRED FORTE [Concomitant]
     Dosage: 2 DROPS
     Route: 047
     Dates: start: 20100729
  13. CENTRUM SILVER [Concomitant]
     Dosage: 1
     Route: 048
     Dates: start: 20090630
  14. TRAZODONE HCL [Concomitant]
     Dosage: 1
     Route: 048
     Dates: start: 20110106

REACTIONS (1)
  - SCHIZOAFFECTIVE DISORDER [None]
